FAERS Safety Report 5460379-9 (Version None)
Quarter: 2007Q3

REPORT INFORMATION
  Report Type: 
  Country: None (occurrence: None)
  Receive Date: 20070919
  Receipt Date: 20070709
  Transmission Date: 20080115
  Serious: No
  Sender: FDA-Public Use
  Company Number: US-ASTRAZENECA-2007UW15979

PATIENT
  Age: 52 Year
  Sex: Female
  Weight: 83.9 kg

DRUGS (7)
  1. SEROQUEL [Suspect]
     Indication: SCHIZOPHRENIA
     Route: 048
     Dates: start: 20000101
  2. SEROQUEL [Suspect]
     Indication: DEPRESSION
     Route: 048
     Dates: start: 20000101
  3. TOPAMAX [Concomitant]
  4. KLONOPIN [Concomitant]
     Dosage: PRN
  5. LEVOTHYROXINE SODIUM [Concomitant]
  6. PAROXITINE [Concomitant]
  7. TUMS [Concomitant]

REACTIONS (3)
  - HYPOTENSION [None]
  - MUSCLE TWITCHING [None]
  - PULSE ABSENT [None]
